FAERS Safety Report 5052857-1 (Version None)
Quarter: 2006Q3

REPORT INFORMATION
  Report Type: 
  Country: None (occurrence: None)
  Receive Date: 20060713
  Receipt Date: 20060713
  Transmission Date: 20061208
  Serious: Yes (Hospitalization)
  Sender: FDA-Public Use
  Company Number: None

PATIENT
  Sex: Male
  Weight: 76.2 kg

DRUGS (8)
  1. INFLIXIMAB 100 MG CENTOCOR [Suspect]
     Indication: RHEUMATOID ARTHRITIS
     Dosage: 5 MG/KG EVERY 8 WEEKS IV DRIP
     Route: 041
     Dates: start: 20050801, end: 20060528
  2. CARVEDILOL [Concomitant]
  3. FUROSEMIDE [Concomitant]
  4. OLMESARTAN [Concomitant]
  5. GABAPENTIN [Concomitant]
  6. VERAPAMIL ER [Concomitant]
  7. WARFARIN SODIUM [Concomitant]
  8. EPOETIN ALFA [Concomitant]

REACTIONS (5)
  - ANOREXIA [None]
  - ASTHENIA [None]
  - DIARRHOEA [None]
  - INFECTION [None]
  - PULMONARY TUBERCULOSIS [None]
